FAERS Safety Report 10549997 (Version 1)
Quarter: 2014Q4

REPORT INFORMATION
  Report Type: Spontaneous
  Country: US (occurrence: US)
  Receive Date: 20141028
  Receipt Date: 20141028
  Transmission Date: 20150529
  Serious: No
  Sender: FDA-Public Use
  Company Number: US-CUBIST PHARMACEUTICALS, INC.-2014CBST001215

PATIENT

DRUGS (14)
  1. CUBICIN [Suspect]
     Active Substance: DAPTOMYCIN
     Indication: OFF LABEL USE
     Dosage: 4 MG/KG, QD
     Route: 040
     Dates: start: 20140710, end: 20140718
  2. CUBICIN [Suspect]
     Active Substance: DAPTOMYCIN
     Dosage: 6.0 MG/KG, QD
     Route: 040
     Dates: start: 20140821, end: 20140822
  3. CUBICIN [Suspect]
     Active Substance: DAPTOMYCIN
     Dosage: UNK
  4. CUBICIN [Suspect]
     Active Substance: DAPTOMYCIN
     Dosage: 4 MG/KG, QD
     Route: 040
     Dates: start: 20140721, end: 20140820
  5. CUBICIN [Suspect]
     Active Substance: DAPTOMYCIN
     Dosage: 300 MG, QD
     Route: 040
     Dates: start: 20140821, end: 20140822
  6. PANTOPRAZOLE [Concomitant]
     Active Substance: PANTOPRAZOLE SODIUM
     Indication: PRODUCT USED FOR UNKNOWN INDICATION
     Dosage: 40 MG, UNK
     Route: 065
  7. LISINOPRIL. [Concomitant]
     Active Substance: LISINOPRIL
     Indication: PRODUCT USED FOR UNKNOWN INDICATION
     Dosage: 10 MG, UNK
     Route: 065
  8. BACTRIM DS [Concomitant]
     Active Substance: SULFAMETHOXAZOLE\TRIMETHOPRIM
     Indication: PRODUCT USED FOR UNKNOWN INDICATION
     Dosage: UNK UNK, UNK
     Route: 065
  9. CUBICIN [Suspect]
     Active Substance: DAPTOMYCIN
     Dosage: 200 MG, QD
     Route: 040
     Dates: start: 20140721, end: 20140820
  10. CUBICIN [Suspect]
     Active Substance: DAPTOMYCIN
     Dosage: 200 MG, QOD
     Route: 040
     Dates: start: 20140719, end: 20140720
  11. CUBICIN [Suspect]
     Active Substance: DAPTOMYCIN
     Indication: OSTEOMYELITIS
     Dosage: 200 MG, QD
     Route: 040
     Dates: start: 20140710, end: 20140718
  12. ATORVASTATIN [Concomitant]
     Active Substance: ATORVASTATIN
     Indication: PRODUCT USED FOR UNKNOWN INDICATION
     Dosage: 20 MG, UNK
     Route: 065
  13. FERROUS SULFATE [Concomitant]
     Active Substance: FERROUS SULFATE\FERROUS SULFATE, DRIED
     Indication: PRODUCT USED FOR UNKNOWN INDICATION
     Dosage: 325 MG, UNK
     Route: 065
  14. CUBICIN [Suspect]
     Active Substance: DAPTOMYCIN
     Dosage: 4 MG/KG, QOD
     Route: 040
     Dates: start: 20140719, end: 20140720

REACTIONS (7)
  - Asthenia [Not Recovered/Not Resolved]
  - Blood urea increased [Recovered/Resolved]
  - Creatinine renal clearance increased [Recovered/Resolved]
  - Blood creatinine increased [Recovered/Resolved]
  - Nausea [Not Recovered/Not Resolved]
  - Insomnia [Not Recovered/Not Resolved]
  - Pallor [Not Recovered/Not Resolved]

NARRATIVE: CASE EVENT DATE: 20140712
